FAERS Safety Report 17462243 (Version 1)
Quarter: 2020Q1

REPORT INFORMATION
  Report Type: Spontaneous
  Country: RO (occurrence: RO)
  Receive Date: 20200226
  Receipt Date: 20200226
  Transmission Date: 20200409
  Serious: Yes (Other)
  Sender: FDA-Public Use
  Company Number: RO-AMGEN-ROUSP2020031660

PATIENT
  Age: 70 Year
  Sex: Female

DRUGS (1)
  1. ENBREL [Suspect]
     Active Substance: ETANERCEPT
     Indication: PRODUCT USED FOR UNKNOWN INDICATION
     Dosage: 50 MILLIGRAM, QWK
     Route: 065
     Dates: start: 2014

REACTIONS (4)
  - Staphylococcal infection [Unknown]
  - Gastrointestinal haemorrhage [Unknown]
  - Hernial eventration [Unknown]
  - Diverticulum [Unknown]

NARRATIVE: CASE EVENT DATE: 2018
